FAERS Safety Report 8880715 (Version 1)
Quarter: 2012Q4

REPORT INFORMATION
  Report Type: 
  Country: BR (occurrence: BR)
  Receive Date: 20121101
  Receipt Date: 20121101
  Transmission Date: 20130627
  Serious: Yes (Other)
  Sender: FDA-Public Use
  Company Number: BR-ACCORD-015066

PATIENT
  Age: 62 Year
  Sex: Female
  Weight: 34.2 kg

DRUGS (7)
  1. ONDANSETRON [Concomitant]
     Route: 042
     Dates: start: 20121015, end: 20121015
  2. DIPHENHYDRAMINE [Concomitant]
     Dates: start: 20121015, end: 20121015
  3. TYLEX [Concomitant]
     Dates: start: 20120918
  4. PACLITAXEL [Suspect]
     Indication: EPIGLOTTIC CARCINOMA
     Route: 042
     Dates: start: 20121015, end: 20121015
  5. METOCLOPRAMIDE [Concomitant]
     Dates: start: 20121015, end: 20121015
  6. RANITIDINE [Concomitant]
     Route: 042
     Dates: start: 20121015, end: 20121015
  7. DEXAMETHASONE [Concomitant]
     Indication: PREMEDICATION
     Route: 042
     Dates: start: 20121015, end: 20121015

REACTIONS (4)
  - Erythema [Recovered/Resolved]
  - Abdominal pain upper [Recovered/Resolved]
  - Headache [Recovered/Resolved]
  - Off label use [Unknown]
